FAERS Safety Report 9720829 (Version 1)
Quarter: 2013Q4

REPORT INFORMATION
  Report Type: Spontaneous
  Country: FR (occurrence: FR)
  Receive Date: 20131129
  Receipt Date: 20131129
  Transmission Date: 20140711
  Serious: Yes (Hospitalization)
  Sender: FDA-Public Use
  Company Number: FR-ASTRAZENECA-2013SE86522

PATIENT
  Age: 49 Year
  Sex: Female

DRUGS (9)
  1. INEXIUM [Suspect]
     Indication: ABDOMINAL PAIN UPPER
     Route: 048
     Dates: start: 201305, end: 201308
  2. INEXIUM [Suspect]
     Indication: ABDOMINAL PAIN UPPER
     Route: 048
     Dates: start: 20131018, end: 20131021
  3. INEXIUM [Suspect]
     Indication: ABDOMINAL PAIN UPPER
     Route: 048
     Dates: start: 20131030
  4. PLAQUENIL [Suspect]
     Indication: SYSTEMIC LUPUS ERYTHEMATOSUS
     Route: 048
     Dates: start: 20131002, end: 20131021
  5. COMBIGAN [Suspect]
     Indication: OPEN ANGLE GLAUCOMA
     Route: 047
     Dates: start: 20131002, end: 20131021
  6. TRAVATAN [Suspect]
     Indication: OPEN ANGLE GLAUCOMA
     Dosage: 40 MCG/ML
     Route: 047
     Dates: start: 20131002, end: 20131021
  7. DIAMOX [Suspect]
     Indication: OPEN ANGLE GLAUCOMA
     Route: 065
     Dates: start: 20131002, end: 20131009
  8. DIAMOX [Suspect]
     Indication: OPEN ANGLE GLAUCOMA
     Route: 065
     Dates: start: 20131015, end: 20131021
  9. PARACETAMOL [Concomitant]
     Dosage: 1 G 3 TIMES A DAY, ON DEMAND

REACTIONS (1)
  - Acute generalised exanthematous pustulosis [Recovering/Resolving]
